FAERS Safety Report 19042006 (Version 2)
Quarter: 2021Q1

REPORT INFORMATION
  Report Type: Spontaneous
  Country: US (occurrence: US)
  Receive Date: 20210322
  Receipt Date: 20210328
  Transmission Date: 20210420
  Serious: No
  Sender: FDA-Public Use
  Company Number: US-AMGEN-USASP2021036696

PATIENT
  Age: 69 Year
  Sex: Female
  Weight: 45.8 kg

DRUGS (5)
  1. TAXOL [Concomitant]
     Active Substance: PACLITAXEL
     Indication: BREAST CANCER
     Dosage: UNK
     Route: 065
  2. NEULASTA [Suspect]
     Active Substance: PEGFILGRASTIM
     Indication: PROPHYLAXIS
     Dosage: 6 MILLIGRAM
     Route: 065
  3. ADRIAMYCIN [Concomitant]
     Active Substance: DOXORUBICIN HYDROCHLORIDE
     Indication: BREAST CANCER
     Dosage: UNK
     Route: 065
  4. CYCLOPHOSPHAMIDE. [Concomitant]
     Active Substance: CYCLOPHOSPHAMIDE
     Indication: BREAST CANCER
     Dosage: UNK
     Route: 065
  5. NEULASTA [Suspect]
     Active Substance: PEGFILGRASTIM
     Dosage: 6 MILLIGRAM
     Route: 065

REACTIONS (2)
  - X-ray [Unknown]
  - Wrong technique in product usage process [Unknown]

NARRATIVE: CASE EVENT DATE: 20201230
